FAERS Safety Report 8462202-7 (Version None)
Quarter: 2012Q2

REPORT INFORMATION
  Report Type: 
  Country: None (occurrence: None)
  Receive Date: 20120618
  Receipt Date: 20120605
  Transmission Date: 20120825
  Serious: Yes (Hospitalization, Other)
  Sender: FDA-Public Use
  Company Number: CL-415-2012

PATIENT
  Age: 36 Year

DRUGS (2)
  1. KETAMINE HCL [Suspect]
     Indication: COMPLEX REGIONAL PAIN SYNDROME
     Dosage: 700 MG/H FOR 5 DAYS IV
     Route: 042
  2. MIDAZOLAM HCL [Suspect]
     Indication: COMPLEX REGIONAL PAIN SYNDROME
     Dosage: 35MG/H FOR 5 DAYS IV
     Route: 042

REACTIONS (9)
  - PSYCHOTIC DISORDER [None]
  - FEELING ABNORMAL [None]
  - TEARFULNESS [None]
  - COGNITIVE DISORDER [None]
  - EXAGGERATED STARTLE RESPONSE [None]
  - AFFECT LABILITY [None]
  - ANXIETY [None]
  - INSOMNIA [None]
  - HALLUCINATION, VISUAL [None]
